FAERS Safety Report 9728042 (Version 1)
Quarter: 2013Q4

REPORT INFORMATION
  Report Type: Spontaneous
  Country: DE (occurrence: None)
  Receive Date: 20131127
  Receipt Date: 20131127
  Transmission Date: 20140711
  Serious: Yes (Other)
  Sender: FDA-Public Use
  Company Number: 2023316

PATIENT
  Age: 62 Year
  Sex: Female
  Weight: 59 kg

DRUGS (6)
  1. PACLITAXEL [Suspect]
     Indication: BREAST CANCER
     Dosage: 175 MG/M2 MILLIGRAM(S) SQ. METER
     Route: 042
  2. DIMETINDENE MALEATE [Concomitant]
  3. RANITIDINE HYDROCHLORIDE [Concomitant]
  4. DEXAMETHASONE [Concomitant]
  5. TRASTUZUMAB [Concomitant]
  6. PERTUZUMAB [Concomitant]

REACTIONS (3)
  - Dyspnoea [None]
  - Flushing [None]
  - Nausea [None]
